FAERS Safety Report 19030650 (Version 4)
Quarter: 2022Q3

REPORT INFORMATION
  Report Type: Report from Study
  Country: CO (occurrence: CO)
  Receive Date: 20210319
  Receipt Date: 20220901
  Transmission Date: 20221026
  Serious: Yes (Other)
  Sender: FDA-Public Use
  Company Number: CO-TAKEDA-CO201937262

PATIENT
  Age: 39 Year
  Sex: Male
  Weight: 60 kg

DRUGS (2)
  1. IDURSULFASE [Suspect]
     Active Substance: IDURSULFASE
     Indication: Mucopolysaccharidosis II
     Dosage: 30 MILLIGRAM, 1/WEEK
     Route: 042
     Dates: start: 20120101
  2. IDURSULFASE [Suspect]
     Active Substance: IDURSULFASE
     Dosage: 30 MILLIGRAM, 1/WEEK
     Route: 042
     Dates: start: 20220825

REACTIONS (10)
  - Appendicectomy [Recovering/Resolving]
  - Hernia [Recovering/Resolving]
  - Discomfort [Recovering/Resolving]
  - Weight increased [Unknown]
  - Inappropriate schedule of product administration [Recovering/Resolving]
  - Inflammation [Recovering/Resolving]
  - Pain [Recovering/Resolving]
  - Influenza [Recovering/Resolving]
  - Application site extravasation [Recovered/Resolved]
  - Puncture site pain [Recovered/Resolved]

NARRATIVE: CASE EVENT DATE: 20191027
